FAERS Safety Report 7915298-2 (Version None)
Quarter: 2011Q4

REPORT INFORMATION
  Report Type: 
  Country: None (occurrence: None)
  Receive Date: 20111115
  Receipt Date: 20110311
  Transmission Date: 20120403
  Serious: No
  Sender: FDA-Public Use
  Company Number: US-BAYER-2011-066884

PATIENT
  Age: 46 Year
  Sex: Male
  Weight: 100 kg

DRUGS (4)
  1. ASCORBIC ACID [Concomitant]
  2. ACETYLSALICYLIC ACID SRT [Concomitant]
  3. ALKA-SELTZER PLUS MUCUS + CONGESTION [Suspect]
     Indication: RESPIRATORY TRACT CONGESTION
     Dosage: 2 TAB EVERY 4 HOURS
     Route: 048
     Dates: start: 20110311, end: 20110311
  4. MULTI-VITAMIN [Concomitant]

REACTIONS (1)
  - NO ADVERSE EVENT [None]
